FAERS Safety Report 17756771 (Version 2)
Quarter: 2020Q2

REPORT INFORMATION
  Report Type: Spontaneous
  Country: US (occurrence: US)
  Receive Date: 20200507
  Receipt Date: 20200508
  Transmission Date: 20200714
  Serious: No
  Sender: FDA-Public Use
  Company Number: US-PFIZER INC-2020180597

PATIENT
  Sex: Female

DRUGS (4)
  1. ZOLOFT [Suspect]
     Active Substance: SERTRALINE HYDROCHLORIDE
     Dosage: 1 DF (SHE STARTED TAKING A FULL TABLET OF 25 MG)
  2. ZOLOFT [Suspect]
     Active Substance: SERTRALINE HYDROCHLORIDE
     Dosage: 0.5 DF (CUTTING A 25 MG TABLET TO GET 12.5)
  3. ZOLOFT [Suspect]
     Active Substance: SERTRALINE HYDROCHLORIDE
     Indication: ANXIETY
     Dosage: 25 MG
  4. ATIVAN [Concomitant]
     Active Substance: LORAZEPAM
     Dosage: UNK

REACTIONS (6)
  - Insomnia [Unknown]
  - Malaise [Unknown]
  - Chest discomfort [Unknown]
  - Intentional product misuse [Unknown]
  - Chest pain [Unknown]
  - Dyspnoea [Unknown]
